FAERS Safety Report 9889724 (Version 1)
Quarter: 2014Q1

REPORT INFORMATION
  Report Type: Spontaneous
  Country: FR (occurrence: FR)
  Receive Date: 20140211
  Receipt Date: 20140211
  Transmission Date: 20141002
  Serious: Yes (Hospitalization)
  Sender: FDA-Public Use
  Company Number: FR-PFIZER INC-2014037860

PATIENT
  Age: 85 Year
  Sex: Female

DRUGS (6)
  1. CORDARONE [Suspect]
     Indication: ATRIAL FIBRILLATION
     Dosage: 200 MG, DAILY
     Route: 048
     Dates: end: 20140108
  2. PREVISCAN [Interacting]
     Dosage: 15 MG, DAILY
     Route: 048
     Dates: start: 20131216, end: 20131226
  3. LERCAN [Concomitant]
     Dosage: UNK
     Dates: end: 20140108
  4. COZAAR [Concomitant]
     Dosage: UNK
     Dates: end: 20131228
  5. ATENOLOL [Concomitant]
     Dosage: UNK
     Dates: end: 20131228
  6. LOVENOX [Concomitant]
     Dosage: 0.4 ML, 2 INJECTIONS DAILY
     Route: 058
     Dates: start: 20131216, end: 20131218

REACTIONS (7)
  - Drug interaction [Recovered/Resolved]
  - Muscle haemorrhage [Recovered/Resolved]
  - International normalised ratio increased [Recovered/Resolved]
  - Haemolytic anaemia [Recovered/Resolved]
  - Fall [Recovered/Resolved]
  - Sinus bradycardia [Recovered/Resolved]
  - Renal failure acute [Recovered/Resolved]
